FAERS Safety Report 22395829 (Version 2)
Quarter: 2023Q2

REPORT INFORMATION
  Report Type: Spontaneous
  Country: US (occurrence: US)
  Receive Date: 20230601
  Receipt Date: 20230616
  Transmission Date: 20230722
  Serious: No
  Sender: FDA-Public Use
  Company Number: US-APIL-2312922US

PATIENT
  Age: 55 Year
  Sex: Female

DRUGS (6)
  1. BOTOX COSMETIC [Suspect]
     Active Substance: ONABOTULINUMTOXINA
     Indication: Skin wrinkling
     Dosage: TIME INTERVAL: AS NECESSARY
     Route: 030
     Dates: start: 20220124, end: 20220124
  2. BOTOX COSMETIC [Suspect]
     Active Substance: ONABOTULINUMTOXINA
     Indication: Skin wrinkling
     Dosage: TIME INTERVAL: AS NECESSARY
     Route: 030
     Dates: start: 20230403, end: 20230403
  3. LEVOTHYROXINE [Concomitant]
     Active Substance: LEVOTHYROXINE
     Indication: Hypothyroidism
     Dosage: DOSE DESC: UNK
  4. ATENOLOL [Concomitant]
     Active Substance: ATENOLOL
     Indication: Hypertension
     Dosage: DOSE DESC: UNK
  5. TRETINOIN [Concomitant]
     Active Substance: TRETINOIN
     Indication: Skin disorder
     Dosage: DOSE DESC: UNK
  6. WELLBUTRIN [Concomitant]
     Active Substance: BUPROPION HYDROCHLORIDE
     Indication: Anxiety
     Dosage: DOSE DESC: UNK

REACTIONS (13)
  - Off label use [Unknown]
  - Back pain [Unknown]
  - Product preparation error [Unknown]
  - Urinary tract infection [Unknown]
  - Influenza like illness [Unknown]
  - Fatigue [Unknown]
  - Facial discomfort [Unknown]
  - Nausea [Unknown]
  - Pyrexia [Unknown]
  - Dry eye [Unknown]
  - Pollakiuria [Unknown]
  - Facial paresis [Unknown]
  - Brow ptosis [Unknown]

NARRATIVE: CASE EVENT DATE: 20230401
